FAERS Safety Report 12012869 (Version 1)
Quarter: 2016Q1

REPORT INFORMATION
  Report Type: Spontaneous
  Country: MX (occurrence: MX)
  Receive Date: 20160205
  Receipt Date: 20160205
  Transmission Date: 20160526
  Serious: Yes (Other)
  Sender: FDA-Public Use
  Company Number: MX-SA-2016SA016627

PATIENT
  Age: 74 Year
  Sex: Female
  Weight: 71 kg

DRUGS (3)
  1. CLOPIDOGREL [Concomitant]
     Active Substance: CLOPIDOGREL BISULFATE
     Indication: PULMONARY HYPERTENSION
     Dosage: START DATE: APPROXIMATELY 12 YEARS
     Route: 048
     Dates: start: 2004
  2. APROVEL [Suspect]
     Active Substance: IRBESARTAN
     Indication: HYPERTENSION
     Route: 048
     Dates: start: 201512, end: 201601
  3. APROVEL [Suspect]
     Active Substance: IRBESARTAN
     Indication: HYPERTENSION
     Route: 048
     Dates: start: 201601

REACTIONS (3)
  - Hypertension [Recovered/Resolved]
  - Wrong technique in product usage process [Unknown]
  - Glaucoma [Recovered/Resolved]

NARRATIVE: CASE EVENT DATE: 201601
